FAERS Safety Report 6810957-7 (Version None)
Quarter: 2010Q2

REPORT INFORMATION
  Report Type: 
  Country: None (occurrence: None)
  Receive Date: 20100630
  Receipt Date: 20080808
  Transmission Date: 20101027
  Serious: No
  Sender: FDA-Public Use
  Company Number: US-PFIZER INC-2007071715

PATIENT
  Sex: Female
  Weight: 57 kg

DRUGS (6)
  1. ESTRING [Suspect]
     Indication: VULVOVAGINAL DRYNESS
     Dates: start: 19990101
  2. CRESTOR [Suspect]
     Indication: BLOOD CHOLESTEROL INCREASED
  3. ANTIBIOTICS [Suspect]
     Indication: COUGH
  4. CELEBREX [Concomitant]
  5. CALCIUM CARBONATE [Concomitant]
  6. FISH OIL [Concomitant]

REACTIONS (3)
  - BRONCHITIS [None]
  - COUGH [None]
  - VULVOVAGINAL MYCOTIC INFECTION [None]
